FAERS Safety Report 6278229-X (Version None)
Quarter: 2009Q3

REPORT INFORMATION
  Report Type: 
  Country: None (occurrence: None)
  Receive Date: 20090722
  Receipt Date: 20081013
  Transmission Date: 20100115
  Serious: Yes (Hospitalization)
  Sender: FDA-Public Use
  Company Number: US-AMGEN-QUU355525

PATIENT
  Age: 37 Year
  Sex: Female

DRUGS (1)
  1. ARANESP [Suspect]
     Indication: DIALYSIS

REACTIONS (3)
  - FLUID OVERLOAD [None]
  - HAEMOGLOBIN DECREASED [None]
  - HYPERTENSIVE CRISIS [None]
